FAERS Safety Report 5767178-9 (Version None)
Quarter: 2008Q2

REPORT INFORMATION
  Report Type: 
  Country: None (occurrence: None)
  Receive Date: 20080609
  Receipt Date: 20080424
  Transmission Date: 20081010
  Serious: No
  Sender: FDA-Public Use
  Company Number: 002#2#2008-00330

PATIENT
  Age: 57 Year
  Sex: Male

DRUGS (16)
  1. NEUPRO [Suspect]
     Indication: PARKINSON'S DISEASE
     Dosage: 6MG/24H,1 IN 1 D,TRANSDERMAL
     Route: 062
     Dates: start: 20070701
  2. SINEMET [Concomitant]
  3. COMTAN [Concomitant]
  4. DURAGESIC-100 [Concomitant]
  5. ROXICODONE [Concomitant]
  6. ZANAFLEX [Concomitant]
  7. AMBIEN CR [Concomitant]
  8. DEPAKOTE [Concomitant]
  9. LACTULOSE [Concomitant]
  10. RISPERDAL [Concomitant]
  11. SEROQUEL [Concomitant]
  12. TOPAMAX [Concomitant]
  13. VALIUM [Concomitant]
  14. PRAVACHOL [Concomitant]
  15. CELEBREX [Concomitant]
  16. FLONASE [Concomitant]

REACTIONS (2)
  - BALANCE DISORDER [None]
  - GAIT DISTURBANCE [None]
